FAERS Safety Report 5032060-1 (Version None)
Quarter: 2006Q2

REPORT INFORMATION
  Report Type: 
  Country: None (occurrence: None)
  Receive Date: 20060619
  Receipt Date: 20060606
  Transmission Date: 20061013
  Serious: Yes (Life-Threatening, Hospitalization)
  Sender: FDA-Public Use
  Company Number: WAES 0606USA01497

PATIENT
  Age: 68 Year
  Sex: Female
  Weight: 75.7507 kg

DRUGS (10)
  1. FOSAMAX [Suspect]
     Indication: OSTEOPOROSIS
     Dosage: 10 MG PO
     Route: 048
     Dates: start: 19940915
  2. 0663-BLINDED THERAPY [Suspect]
     Indication: ARTHRITIS
     Dosage: PO
     Route: 048
     Dates: start: 20030205, end: 20060321
  3. ASPIRIN [Concomitant]
  4. ATENOLOL [Concomitant]
  5. CEPHALEXIN [Concomitant]
  6. FERROUS SULFATE TAB [Concomitant]
  7. FUROSEMIDE SODIUM [Concomitant]
  8. HYDROCHLOROTHIAZIDE (+) IRBESART [Concomitant]
  9. INSULIN, BIPHASIC ISOPHANE [Concomitant]
  10. METFORMIN HCL [Concomitant]

REACTIONS (5)
  - FAECES DISCOLOURED [None]
  - HAEMATEMESIS [None]
  - HAEMATOCRIT DECREASED [None]
  - HAEMOGLOBIN DECREASED [None]
  - OESOPHAGEAL HAEMORRHAGE [None]
